FAERS Safety Report 5375202-0 (Version None)
Quarter: 2007Q2

REPORT INFORMATION
  Report Type: 
  Country: None (occurrence: None)
  Receive Date: 20070629
  Receipt Date: 20061226
  Transmission Date: 20071010
  Serious: No
  Sender: FDA-Public Use
  Company Number: US-ASTRAZENECA-2006UW28506

PATIENT
  Age: 67 Year
  Sex: Female
  Weight: 78 kg

DRUGS (7)
  1. TAMOXIFEN CITRATE [Suspect]
     Indication: BREAST CANCER
     Route: 048
  2. NORVASC [Concomitant]
  3. HYDROCHLOROTHIAZIDE [Concomitant]
  4. TOPROL-XL [Concomitant]
  5. DETROL [Concomitant]
  6. LIPITOR [Concomitant]
  7. DIOVAN [Concomitant]

REACTIONS (2)
  - METASTASES TO LUNG [None]
  - WEIGHT INCREASED [None]
